FAERS Safety Report 23847610 (Version 2)
Quarter: 2024Q2

REPORT INFORMATION
  Report Type: Spontaneous
  Country: US (occurrence: US)
  Receive Date: 20240513
  Receipt Date: 20240521
  Transmission Date: 20240715
  Serious: Yes (Hospitalization, Other)
  Sender: FDA-Public Use
  Company Number: US-AMNEAL PHARMACEUTICALS-2024-AMRX-01608

PATIENT
  Sex: Female
  Weight: 13.605 kg

DRUGS (1)
  1. ERYTHROMYCIN ETHYLSUCCINATE [Suspect]
     Active Substance: ERYTHROMYCIN ETHYLSUCCINATE
     Indication: Gastrooesophageal reflux disease
     Dosage: UNK
     Route: 048
     Dates: start: 202404

REACTIONS (2)
  - Seizure [Unknown]
  - Liquid product physical issue [Unknown]
